FAERS Safety Report 8488015-8 (Version None)
Quarter: 2012Q3

REPORT INFORMATION
  Report Type: 
  Country: None (occurrence: None)
  Receive Date: 20120705
  Receipt Date: 20120621
  Transmission Date: 20120928
  Serious: Yes (Hospitalization, Other)
  Sender: FDA-Public Use
  Company Number: US-UCBSA-060280

PATIENT
  Age: 39 Year
  Sex: Female

DRUGS (4)
  1. FOLIC ACID [Concomitant]
     Dosage: DAILY DOSE: 1 MG
  2. PHENERGAN HCL [Concomitant]
     Indication: NAUSEA
     Dosage: 25 MG EVERY 6 HOURS AS NEEDED
  3. CIMZIA [Suspect]
     Indication: CROHN'S DISEASE
     Dates: start: 20080101
  4. FENTORA [Concomitant]
     Dosage: 800 MG BUCCAL 4 TIMES DAILY PRN
     Route: 002

REACTIONS (4)
  - DIARRHOEA [None]
  - PHLEBITIS [None]
  - VOMITING [None]
  - MUSCLE SPASMS [None]
